FAERS Safety Report 20042128 (Version 4)
Quarter: 2024Q1

REPORT INFORMATION
  Report Type: Spontaneous
  Country: US (occurrence: US)
  Receive Date: 20211108
  Receipt Date: 20240116
  Transmission Date: 20240409
  Serious: No
  Sender: FDA-Public Use
  Company Number: US-GLAXOSMITHKLINE-US2021AMR225579

PATIENT
  Sex: Female
  Weight: 68.027 kg

DRUGS (2)
  1. ZEJULA [Suspect]
     Active Substance: NIRAPARIB
     Indication: Ovarian cancer
     Dosage: 200 MG, QD
     Dates: start: 2021
  2. ZEJULA [Suspect]
     Active Substance: NIRAPARIB
     Indication: Ovarian cancer
     Dosage: 100 MG, QD
     Route: 048

REACTIONS (5)
  - Headache [Recovering/Resolving]
  - Pruritus [Unknown]
  - Nausea [Unknown]
  - Insomnia [Recovering/Resolving]
  - Product dose omission issue [Unknown]
